FAERS Safety Report 20499880 (Version 1)
Quarter: 2022Q1

REPORT INFORMATION
  Report Type: Spontaneous
  Country: US (occurrence: US)
  Receive Date: 20220222
  Receipt Date: 20220222
  Transmission Date: 20220423
  Serious: No
  Sender: FDA-Public Use
  Company Number: US-UCBSA-2021026158

PATIENT
  Age: 67 Year
  Sex: Female

DRUGS (1)
  1. KEPPRA [Suspect]
     Active Substance: LEVETIRACETAM
     Indication: Seizure
     Dosage: 500 MILLIGRAM, 2X/DAY (BID)
     Route: 048
     Dates: start: 202010

REACTIONS (8)
  - Dry skin [Unknown]
  - Lip dry [Recovering/Resolving]
  - Paraesthesia oral [Unknown]
  - Lip discolouration [Recovering/Resolving]
  - Oral discomfort [Unknown]
  - Oral herpes [Unknown]
  - Vaccination complication [Recovering/Resolving]
  - COVID-19 immunisation [Unknown]

NARRATIVE: CASE EVENT DATE: 20210501
